FAERS Safety Report 9220699 (Version 1)
Quarter: 2013Q2

REPORT INFORMATION
  Report Type: Report from Study
  Country: FR (occurrence: FR)
  Receive Date: 20130409
  Receipt Date: 20130409
  Transmission Date: 20140414
  Serious: Yes (Hospitalization)
  Sender: FDA-Public Use
  Company Number: FR-009507513-1304FRA001206

PATIENT
  Age: 73 Year
  Sex: Male
  Weight: 91 kg

DRUGS (16)
  1. BLINDED EZETIMIBE (+) SIMVASTATIN [Suspect]
     Indication: ACUTE CORONARY SYNDROME
     Dosage: UNK
     Route: 048
     Dates: start: 20091117
  2. BLINDED PLACEBO [Suspect]
     Indication: ACUTE CORONARY SYNDROME
     Dosage: UNK
     Route: 048
     Dates: start: 20091117
  3. BLINDED POST TRIAL THERAPY [Suspect]
     Indication: ACUTE CORONARY SYNDROME
     Dosage: UNK
     Route: 048
     Dates: start: 20091117
  4. BLINDED PRE TRIAL THERAPY [Suspect]
     Indication: ACUTE CORONARY SYNDROME
     Dosage: UNK
     Route: 048
     Dates: start: 20091117
  5. BLINDED SIMVASTATIN [Suspect]
     Indication: ACUTE CORONARY SYNDROME
     Dosage: UNK
     Route: 048
     Dates: start: 20091117
  6. BLINDED THERAPY [Suspect]
     Indication: ACUTE CORONARY SYNDROME
     Dosage: UNK
     Route: 048
     Dates: start: 20091117
  7. SPIRIVA [Concomitant]
     Dosage: 18 MICROGRAM DAILY
     Route: 048
     Dates: start: 20091117
  8. OMEXEL [Concomitant]
     Dosage: 0.4 MG DAILY
     Route: 048
     Dates: start: 20120629
  9. COVERSYL (PERINDOPRIL ARGININE) [Concomitant]
     Dosage: 10 M DAILY
     Route: 048
     Dates: start: 20120629
  10. KARDEGIC [Concomitant]
     Dosage: 75 MG DAILY
     Route: 048
     Dates: start: 20091117
  11. FUROSEMIDE [Concomitant]
     Dosage: 20 MG DAILY
     Route: 048
     Dates: start: 20110223
  12. BROMAZEPAM [Concomitant]
     Dosage: 1.5 MG DAILY
     Route: 048
     Dates: start: 20091117
  13. CARDENSIEL [Concomitant]
     Dosage: 2.5 MG DAILY
     Route: 048
     Dates: start: 20091117
  14. PANTOPRAZOLE [Concomitant]
     Dosage: 20 MG DAILY
     Route: 048
     Dates: start: 20091117
  15. CERIS [Concomitant]
     Dosage: 20 MG DAILY
     Route: 048
     Dates: start: 20110223
  16. IMOVANE [Concomitant]
     Dosage: 1 CP DAILY
     Route: 048
     Dates: start: 20110223

REACTIONS (1)
  - Abdominal hernia [Recovered/Resolved]
